FAERS Safety Report 11029944 (Version 1)
Quarter: 2015Q2

REPORT INFORMATION
  Report Type: Spontaneous
  Country: US (occurrence: US)
  Receive Date: 20150415
  Receipt Date: 20150415
  Transmission Date: 20150821
  Serious: No
  Sender: FDA-Public Use
  Company Number: US-BIOGENIDEC-2015BI048505

PATIENT
  Age: 52 Year
  Sex: Female

DRUGS (6)
  1. OXYCODONE HCL [Concomitant]
     Active Substance: OXYCODONE HYDROCHLORIDE
  2. GABAPENTIN. [Concomitant]
     Active Substance: GABAPENTIN
  3. OMEPRAZOLE. [Concomitant]
     Active Substance: OMEPRAZOLE
  4. BACLOFEN. [Concomitant]
     Active Substance: BACLOFEN
  5. AVONEX [Suspect]
     Active Substance: INTERFERON BETA-1A
     Indication: MULTIPLE SCLEROSIS
     Route: 030
  6. MORPHINE SULFATE ER [Concomitant]
     Active Substance: MORPHINE SULFATE

REACTIONS (1)
  - Oedema peripheral [Unknown]
